FAERS Safety Report 9330632 (Version 2)
Quarter: 2013Q4

REPORT INFORMATION
  Report Type: Report from Study
  Country: PL (occurrence: PL)
  Receive Date: 20130605
  Receipt Date: 20131021
  Transmission Date: 20140711
  Serious: Yes (Hospitalization, Other)
  Sender: FDA-Public Use
  Company Number: PL-009507513-1306POL000139

PATIENT
  Age: 28 Year
  Sex: Male

DRUGS (3)
  1. RIBAVIRIN [Suspect]
     Indication: CHRONIC HEPATITIS C
     Dosage: UNK UNK, QD
     Route: 048
     Dates: start: 20121029
  2. BOCEPREVIR [Suspect]
     Indication: CHRONIC HEPATITIS C
     Dosage: UNK UNK, QD
     Route: 048
     Dates: start: 20121126
  3. PEGINTERFERON ALFA-2A [Suspect]
     Indication: CHRONIC HEPATITIS C
     Dosage: UNK, QW
     Route: 058
     Dates: start: 20121029

REACTIONS (1)
  - Overdose [Unknown]
